FAERS Safety Report 24972584 (Version 1)
Quarter: 2025Q1

REPORT INFORMATION
  Report Type: Spontaneous
  Country: US (occurrence: US)
  Receive Date: 20250215
  Receipt Date: 20250215
  Transmission Date: 20250408
  Serious: No
  Sender: SANDOZ
  Company Number: US-SANDOZ-SDZ2025US007822

PATIENT
  Age: 91 Year
  Sex: Male

DRUGS (1)
  1. ALBUTEROL SULFATE [Suspect]
     Active Substance: ALBUTEROL SULFATE
     Indication: Bronchial hyperreactivity
     Dosage: 2 PUFFS EVERY 4 HOURS FOR 7 DAYS
     Route: 065

REACTIONS (2)
  - Wrong technique in device usage process [Unknown]
  - Device defective [Unknown]
